FAERS Safety Report 16686329 (Version 2)
Quarter: 2019Q4

REPORT INFORMATION
  Report Type: Spontaneous
  Country: DE (occurrence: DE)
  Receive Date: 20190809
  Receipt Date: 20191105
  Transmission Date: 20200122
  Serious: Yes (Disabling)
  Sender: FDA-Public Use
  Company Number: DE-ROCHE-2375710

PATIENT
  Sex: Female

DRUGS (5)
  1. PARACETAMOL [Concomitant]
     Active Substance: ACETAMINOPHEN
     Route: 042
     Dates: start: 20190503, end: 20190517
  2. RANITIC [Concomitant]
     Active Substance: RANITIDINE HYDROCHLORIDE
     Route: 042
     Dates: start: 20190503, end: 20190517
  3. DEKRISTOL [Concomitant]
     Active Substance: CHOLECALCIFEROL
     Route: 048
  4. OCREVUS [Suspect]
     Active Substance: OCRELIZUMAB
     Indication: MULTIPLE SCLEROSIS
     Dosage: DATE OF TREATMENT:28/MAY/2019
     Route: 042
     Dates: start: 20190514
  5. TAVEGIL [CLEMASTINE] [Concomitant]
     Active Substance: CLEMASTINE
     Route: 042
     Dates: start: 20190503, end: 20190517

REACTIONS (1)
  - Dyspnoea [Not Recovered/Not Resolved]
